FAERS Safety Report 9976978 (Version 1)
Quarter: 2014Q1

REPORT INFORMATION
  Report Type: Spontaneous
  Country: US (occurrence: US)
  Receive Date: 20140306
  Receipt Date: 20140306
  Transmission Date: 20141002
  Serious: Yes (Hospitalization)
  Sender: FDA-Public Use
  Company Number: US-ABBVIE-13P-163-1167781-00

PATIENT
  Sex: Female
  Weight: 63.56 kg

DRUGS (5)
  1. HUMIRA [Suspect]
     Indication: CROHN^S DISEASE
     Route: 058
     Dates: start: 2011, end: 201110
  2. HUMIRA [Suspect]
     Route: 058
     Dates: start: 201110, end: 201111
  3. CIMZIA [Suspect]
     Indication: CROHN^S DISEASE
     Dates: start: 20111108, end: 201201
  4. CIMZIA [Suspect]
  5. ENTOCORT [Concomitant]
     Indication: CROHN^S DISEASE
     Dates: start: 2009, end: 2011

REACTIONS (11)
  - Gastrointestinal infection [Recovered/Resolved]
  - Colostomy [Unknown]
  - Serum sickness [Recovered/Resolved]
  - Asthenia [Recovered/Resolved]
  - Pain [Recovered/Resolved]
  - Rash [Recovered/Resolved]
  - Diarrhoea [Unknown]
  - Blood immunoglobulin A increased [Unknown]
  - Upper limb fracture [Recovered/Resolved]
  - Asthenia [Recovering/Resolving]
  - Chills [Unknown]
